FAERS Safety Report 9788442 (Version 1)
Quarter: 2013Q4

REPORT INFORMATION
  Report Type: Spontaneous
  Country: NL (occurrence: NL)
  Receive Date: 20131230
  Receipt Date: 20131230
  Transmission Date: 20140711
  Serious: Yes (Other)
  Sender: FDA-Public Use
  Company Number: NL-PFIZER INC-2013371134

PATIENT
  Sex: Male

DRUGS (1)
  1. DOXYCYCLINE HYCLATE [Suspect]
     Dosage: UNK

REACTIONS (5)
  - Depressed level of consciousness [Unknown]
  - Pallor [Unknown]
  - Pulse abnormal [Unknown]
  - Restlessness [Unknown]
  - Blood pressure decreased [Unknown]
